FAERS Safety Report 18533634 (Version 1)
Quarter: 2020Q4

REPORT INFORMATION
  Report Type: Spontaneous
  Country: US (occurrence: US)
  Receive Date: 20201120
  Receipt Date: 20201120
  Transmission Date: 20210114
  Serious: No
  Sender: FDA-Public Use
  Company Number: None

PATIENT
  Age: 72 Year
  Sex: Female
  Weight: 87.3 kg

DRUGS (22)
  1. BUTALBITAL-APAP-CAFFEINE 50-325-40MG [Concomitant]
  2. DOXYCYCLINE 20MG [Concomitant]
     Active Substance: DOXYCYCLINE
  3. IRON [Concomitant]
     Active Substance: IRON
  4. FLUTICASONE 50MCG/ACT [Concomitant]
  5. GABAPENTIN 300MG [Concomitant]
     Active Substance: GABAPENTIN
  6. PROCHLORPERAZINE 10MG [Concomitant]
  7. BUMETANIDE 2MG [Concomitant]
  8. LISINOPRIL. [Concomitant]
     Active Substance: LISINOPRIL
  9. MUCINEX D 600MG [Concomitant]
  10. ONDANSETRON 8MG [Concomitant]
     Active Substance: ONDANSETRON
  11. CAPECITABINE. [Suspect]
     Active Substance: CAPECITABINE
     Indication: BREAST CANCER FEMALE
     Route: 048
     Dates: start: 20200919
  12. LACTULOSE 10GM/15ML [Concomitant]
  13. GLIPIZIDE ER [Concomitant]
     Active Substance: GLIPIZIDE
  14. LIDOCAINE-PRILOCAINE 2.5-2.5% [Concomitant]
  15. MAGNESIUM OXIDE 400MG [Concomitant]
     Active Substance: MAGNESIUM OXIDE
  16. PREDNISONE 20MG [Concomitant]
     Active Substance: PREDNISONE
  17. HYDROCODONE-APAP 5-325MG [Concomitant]
  18. ALPRAZOLAM 0.25MG [Concomitant]
     Active Substance: ALPRAZOLAM
  19. CLORAZEPATE 3.75MG [Concomitant]
  20. CEPACOL SORE THROAT 15-2.6MG [Concomitant]
  21. METAXALONE 800MG [Concomitant]
  22. POTASSIUM CHLORIDE ER 10MEQ [Concomitant]
     Active Substance: POTASSIUM CHLORIDE

REACTIONS (3)
  - Vomiting [None]
  - Diarrhoea [None]
  - Abdominal pain upper [None]

NARRATIVE: CASE EVENT DATE: 20201120
